FAERS Safety Report 11130367 (Version 2)
Quarter: 2015Q2

REPORT INFORMATION
  Report Type: Report from Study
  Country: US (occurrence: US)
  Receive Date: 20150522
  Receipt Date: 20150616
  Transmission Date: 20150821
  Serious: Yes (Death)
  Sender: FDA-Public Use
  Company Number: US-ROCHE-1580195

PATIENT
  Age: 48 Year
  Sex: Male

DRUGS (10)
  1. TRASTUZUMAB [Suspect]
     Active Substance: TRASTUZUMAB
     Indication: METASTATIC GASTRIC CANCER
     Dosage: LAST DOSE PRIOR TO SAE: 02/MAR/2014.
     Route: 065
     Dates: start: 20140217
  2. TRASTUZUMAB [Suspect]
     Active Substance: TRASTUZUMAB
     Indication: GASTROOESOPHAGEAL CANCER
  3. DOCETAXEL. [Suspect]
     Active Substance: DOCETAXEL
     Indication: GASTROOESOPHAGEAL CANCER
  4. LEUCOVORIN [Suspect]
     Active Substance: LEUCOVORIN
     Indication: GASTROOESOPHAGEAL CANCER
  5. 5-FU [Suspect]
     Active Substance: FLUOROURACIL
     Indication: GASTROOESOPHAGEAL CANCER
  6. DOCETAXEL. [Suspect]
     Active Substance: DOCETAXEL
     Indication: METASTATIC GASTRIC CANCER
     Dosage: LAST DOSE PRIOR TO SAE: 02/MAR/2014.
     Route: 065
     Dates: start: 20140217
  7. CISPLATIN. [Suspect]
     Active Substance: CISPLATIN
     Indication: METASTATIC GASTRIC CANCER
     Dosage: LAST DOSE PRIOR TO SAE: 02/MAR/2014.
     Route: 065
     Dates: start: 20140217
  8. 5-FU [Suspect]
     Active Substance: FLUOROURACIL
     Indication: METASTATIC GASTRIC CANCER
     Dosage: LAST DOSE PRIOR TO SAE: 02/MAR/2014.
     Route: 065
     Dates: start: 20140217
  9. CISPLATIN. [Suspect]
     Active Substance: CISPLATIN
     Indication: GASTROOESOPHAGEAL CANCER
  10. LEUCOVORIN [Suspect]
     Active Substance: LEUCOVORIN
     Indication: METASTATIC GASTRIC CANCER
     Dosage: LAST DOSE PRIOR TO SAE: 02/MAR/2014.
     Route: 065
     Dates: start: 20140217

REACTIONS (1)
  - Death [Fatal]

NARRATIVE: CASE EVENT DATE: 20140309
